FAERS Safety Report 7511154-2 (Version None)
Quarter: 2011Q2

REPORT INFORMATION
  Report Type: 
  Country: None (occurrence: None)
  Receive Date: 20110531
  Receipt Date: 20090822
  Transmission Date: 20111010
  Serious: Yes (Other)
  Sender: FDA-Public Use
  Company Number: US-BAYER-200930650NA

PATIENT
  Age: 78 Year
  Sex: Female
  Weight: 76 kg

DRUGS (9)
  1. TRASYLOL [Suspect]
     Indication: CORONARY ARTERY BYPASS
     Route: 042
     Dates: start: 20060725
  2. RED BLOOD CELLS [Concomitant]
     Dosage: 3 UNITS
     Dates: start: 20060725
  3. COUMADIN [Concomitant]
     Dosage: UNK
     Dates: start: 20060201
  4. COREG [Concomitant]
     Dosage: 25 MG TWICE DAILY
     Route: 048
     Dates: start: 20051015
  5. PLAVIX [Concomitant]
     Dosage: 75 MG DAILY
     Route: 048
     Dates: start: 20060530, end: 20060622
  6. ACETYLSALICYLIC ACID SRT [Concomitant]
     Dosage: 81 MG DAILY
     Route: 048
  7. CARDURA [Concomitant]
     Dosage: 1 MG DAILY
     Route: 048
  8. IMDUR [Concomitant]
     Dosage: 30 MG DAILY
     Route: 048
  9. NORVASC [Concomitant]
     Dosage: 10 MG DAILY
     Dates: start: 20060302

REACTIONS (5)
  - RENAL FAILURE [None]
  - INJURY [None]
  - UNEVALUABLE EVENT [None]
  - RENAL FAILURE ACUTE [None]
  - PAIN [None]
